FAERS Safety Report 5299723-4 (Version None)
Quarter: 2007Q2

REPORT INFORMATION
  Report Type: 
  Country: None (occurrence: None)
  Receive Date: 20070410
  Receipt Date: 20070326
  Transmission Date: 20071010
  Serious: Yes (Hospitalization)
  Sender: FDA-Public Use
  Company Number: 16070

PATIENT
  Age: 65 Year
  Sex: Female

DRUGS (5)
  1. CYTARABINE [Suspect]
     Indication: ACUTE MYELOID LEUKAEMIA
     Dosage: 28 MG PER_CYCLE SC
     Route: 058
     Dates: start: 20061102, end: 20070125
  2. RIFATAR [Concomitant]
  3. ETHAMBUTOL HYDROCHLORIDE [Concomitant]
  4. VITAMIN B6 [Concomitant]
  5. NYSTATIN [Concomitant]

REACTIONS (4)
  - CONDITION AGGRAVATED [None]
  - FEBRILE NEUTROPENIA [None]
  - LYMPHADENECTOMY [None]
  - ORAL CANDIDIASIS [None]
